FAERS Safety Report 5019217-0 (Version None)
Quarter: 2006Q2

REPORT INFORMATION
  Report Type: 
  Country: None (occurrence: None)
  Receive Date: 20060531
  Receipt Date: 20060511
  Transmission Date: 20061013
  Serious: Yes (Other)
  Sender: FDA-Public Use
  Company Number: 2006ADE/DICLO-008

PATIENT
  Age: 52 Year
  Sex: Male

DRUGS (4)
  1. DICLOFENAC RETARD-RATIOPHARM 100 [Suspect]
     Indication: BACK PAIN
     Dosage: ORAL
     Route: 048
  2. OMEPRAZOLE [Concomitant]
  3. LOSARTAN AND DIURETICS [Concomitant]
  4. ATENOLOL AND OTHER DIURETICS, COMBNIATIONS [Concomitant]

REACTIONS (1)
  - RENAL FAILURE [None]
